FAERS Safety Report 13608027 (Version 1)
Quarter: 2017Q2

REPORT INFORMATION
  Report Type: Spontaneous
  Country: JP (occurrence: JP)
  Receive Date: 20170602
  Receipt Date: 20170602
  Transmission Date: 20170830
  Serious: Yes (Other)
  Sender: FDA-Public Use
  Company Number: JP-BAYER-2017-097697

PATIENT
  Age: 34 Year
  Sex: Female

DRUGS (2)
  1. ACETYLSALICYLIC ACID({=100 MG) [Suspect]
     Active Substance: ASPIRIN
     Indication: HABITUAL ABORTION
     Dosage: UNK
  2. HEPARIN [Interacting]
     Active Substance: HEPARIN SODIUM
     Indication: HABITUAL ABORTION
     Dosage: 10000 U, QD

REACTIONS (9)
  - Labelled drug-drug interaction medication error [None]
  - Drug administration error [None]
  - Maternal exposure during pregnancy [None]
  - Product use in unapproved indication [None]
  - Premature delivery [None]
  - Subchorionic haematoma [None]
  - Off label use [None]
  - Foetal placental thrombosis [None]
  - Gestational hypertension [None]
